FAERS Safety Report 21553957 (Version 2)
Quarter: 2022Q4

REPORT INFORMATION
  Report Type: Spontaneous
  Country: FR (occurrence: FR)
  Receive Date: 20221104
  Receipt Date: 20221208
  Transmission Date: 20230112
  Serious: Yes (Hospitalization, Other)
  Sender: FDA-Public Use
  Company Number: None

PATIENT
  Age: 77 Year
  Sex: Male
  Weight: 60 kg

DRUGS (5)
  1. INDAPAMIDE [Interacting]
     Active Substance: INDAPAMIDE
     Indication: Hypertension
     Dosage: 1 DOSAGE FORMS DAILY; UNIT DOSE : 1 DOSAGE FORM ,FREQUENCY TIME : 24  HOURS, THERAPY START DATE  : A
     Route: 065
     Dates: end: 20220921
  2. PERINDOPRIL [Interacting]
     Active Substance: PERINDOPRIL
     Indication: Hypertension
     Dosage: 1 DOSAGE FORMS DAILY; 1 DF, QD , THERAPY START DATE  : ASKU
     Route: 065
     Dates: end: 20220921
  3. TERALITHE [Interacting]
     Active Substance: LITHIUM CARBONATE
     Indication: Product used for unknown indication
     Dosage: UNSPECIFIED,PROLONGED-RELEASE SCORED TABLET, STRENGTH : 400 MG, THERAPY START DATE  : NASK
     Route: 065
     Dates: end: 20220921
  4. ESIDREX [Interacting]
     Active Substance: HYDROCHLOROTHIAZIDE
     Indication: Cardiac failure
     Dosage: 25 MG/24H FROM 05/09 TO 09/09 THEN 50 MG SINCE 10/09 , THERAPY START DATE  : NASK
     Route: 065
     Dates: end: 20220921
  5. HYDROCHLOROTHIAZIDE [Suspect]
     Active Substance: HYDROCHLOROTHIAZIDE
     Indication: Cardiac failure
     Dosage: UNK, THERAPY START DATE : ASKU
     Dates: end: 20220921

REACTIONS (3)
  - Serotonin syndrome [Recovered/Resolved]
  - Overdose [Recovered/Resolved]
  - Drug interaction [Unknown]

NARRATIVE: CASE EVENT DATE: 20220920
